FAERS Safety Report 9446400 (Version 1)
Quarter: 2013Q3

REPORT INFORMATION
  Report Type: Spontaneous
  Country: US (occurrence: US)
  Receive Date: 20130807
  Receipt Date: 20130807
  Transmission Date: 20140515
  Serious: No
  Sender: FDA-Public Use
  Company Number: US-AMGEN-USASP2013046724

PATIENT
  Age: 55 Year
  Sex: Female
  Weight: 62.59 kg

DRUGS (1)
  1. ENBREL [Suspect]
     Indication: RHEUMATOID ARTHRITIS
     Dosage: 50 MG, QWK
     Route: 058
     Dates: start: 20130619, end: 20130703

REACTIONS (2)
  - Sinusitis [Not Recovered/Not Resolved]
  - Viral upper respiratory tract infection [Unknown]
